FAERS Safety Report 8052532-5 (Version None)
Quarter: 2012Q1

REPORT INFORMATION
  Report Type: 
  Country: None (occurrence: None)
  Receive Date: 20120118
  Receipt Date: 20120104
  Transmission Date: 20120608
  Serious: Yes (Hospitalization)
  Sender: FDA-Public Use
  Company Number: GB-CELGENEUS-167-FK228-11122069

PATIENT
  Sex: Male
  Weight: 86 kg

DRUGS (23)
  1. KETOCONAZOLE [Suspect]
     Dosage: 400 MILLIGRAM
     Route: 048
     Dates: start: 20111203, end: 20111207
  2. AMLODIPINE [Concomitant]
     Indication: HYPERTENSION
     Dosage: 10 MILLIGRAM
     Route: 048
     Dates: start: 19910101
  3. ACETAMINOPHEN [Concomitant]
     Indication: PAIN
     Route: 048
     Dates: start: 19900101
  4. VOLTAREN [Concomitant]
     Indication: PAIN
     Dosage: 75 MILLIGRAM
     Route: 048
     Dates: start: 20111101
  5. LANSOPRAZOLE [Concomitant]
     Indication: PROPHYLAXIS
     Dosage: 30 MILLIGRAM
     Route: 048
     Dates: start: 20111206
  6. ROMIDEPSIN [Suspect]
     Dosage: 8 MILLIGRAM/SQ. METER
     Route: 041
     Dates: start: 20111130
  7. ROMIDEPSIN [Suspect]
     Dosage: 8 MILLIGRAM/SQ. METER
     Route: 041
     Dates: start: 20111207, end: 20111216
  8. METOCLOPRAMIDE [Concomitant]
     Indication: NAUSEA
     Route: 048
     Dates: start: 20111130
  9. DEXAMETHASONE [Concomitant]
     Indication: ANTIEMETIC SUPPORTIVE CARE
     Dosage: 12 MILLIGRAM
     Route: 041
     Dates: start: 20111130, end: 20111130
  10. MAGNESIUM ASPARTATE [Concomitant]
     Dosage: 20 MILLIMOLE
     Route: 048
     Dates: start: 20111202
  11. MORPHINE [Concomitant]
     Dosage: 30 MILLIGRAM
     Route: 048
     Dates: start: 20111214
  12. GRAMISETAN [Concomitant]
     Indication: NAUSEA
     Dosage: 1 MILLIGRAM
     Route: 041
     Dates: start: 20111201, end: 20111201
  13. BENDROFLUMETHIAZIDE [Concomitant]
     Indication: HYPERTENSION
     Dosage: 2.5 MILLIGRAM
     Route: 048
     Dates: start: 19910101
  14. SIMVASTATIN [Concomitant]
     Dosage: 40 MILLIGRAM
     Route: 048
     Dates: start: 20070101
  15. GRAMISETAN [Concomitant]
     Indication: ANTIEMETIC SUPPORTIVE CARE
     Dosage: 1 MILLIGRAM
     Route: 041
     Dates: start: 20111130, end: 20111130
  16. PAMIDRONATE DISODIUM [Concomitant]
     Route: 041
     Dates: start: 20110701
  17. MORPHINE [Concomitant]
     Indication: PAIN
     Dosage: 20 MILLIGRAM
     Route: 048
     Dates: start: 20111206, end: 20111214
  18. DEXAMETHASONE [Concomitant]
     Dosage: 12 MILLIGRAM
     Route: 041
     Dates: start: 20111201, end: 20111201
  19. GRAMISETAN [Concomitant]
     Dosage: 1 MILLIGRAM
     Route: 048
     Dates: start: 20111206, end: 20111206
  20. RAMIPRIL [Concomitant]
     Indication: HYPERTENSION
     Dosage: 10 MILLIGRAM
     Route: 048
     Dates: start: 19910101
  21. ORAMORPH SR [Concomitant]
     Indication: PAIN
     Dosage: 30 MILLIGRAM
     Route: 048
     Dates: start: 20111206
  22. IBUPROFEN [Concomitant]
     Indication: PAIN
     Dosage: 1200 MILLIGRAM
     Route: 048
     Dates: start: 20111202
  23. MOVIPREP [Concomitant]
     Indication: CONSTIPATION
     Dosage: SACHETS
     Route: 048
     Dates: start: 20111209

REACTIONS (2)
  - ATRIAL FIBRILLATION [None]
  - ATRIAL FLUTTER [None]
